FAERS Safety Report 4971016-1 (Version None)
Quarter: 2006Q2

REPORT INFORMATION
  Report Type: 
  Country: None (occurrence: None)
  Receive Date: 20060411
  Receipt Date: 20060411
  Transmission Date: 20061013
  Serious: Yes (Death)
  Sender: FDA-Public Use
  Company Number: None

PATIENT
  Age: 36 Year
  Sex: Male
  Weight: 69 kg

DRUGS (2)
  1. IMURAN [Suspect]
     Indication: CROHN'S DISEASE
     Dosage: 150 MG DAILY ORAL [YEARS[
     Route: 048
  2. MERCAPTOPURINE [Suspect]
     Indication: CROHN'S DISEASE
     Dosage: 100 MG DAILY ORAL
     Route: 048
     Dates: start: 20060206, end: 20060305

REACTIONS (4)
  - ACCIDENTAL EXPOSURE [None]
  - BONE MARROW FAILURE [None]
  - INFECTION [None]
  - MEDICATION ERROR [None]
